FAERS Safety Report 10683710 (Version 3)
Quarter: 2015Q1

REPORT INFORMATION
  Report Type: Spontaneous
  Country: JP (occurrence: JP)
  Receive Date: 20141230
  Receipt Date: 20150126
  Transmission Date: 20150720
  Serious: Yes (Life-Threatening, Hospitalization, Other)
  Sender: FDA-Public Use
  Company Number: JP-BRISTOL-MYERS SQUIBB COMPANY-21595392

PATIENT
  Age: 67 Year
  Sex: Male
  Weight: 49 kg

DRUGS (4)
  1. KEFLEX [Concomitant]
     Active Substance: CEPHALEXIN
     Route: 065
  2. TAKEPRON [Concomitant]
     Active Substance: LANSOPRAZOLE
     Route: 065
  3. ELIQUIS [Suspect]
     Active Substance: APIXABAN
     Indication: CEREBROVASCULAR ACCIDENT PROPHYLAXIS
     Dosage: 5 MG, BID
     Route: 048
     Dates: start: 20141022, end: 20141031
  4. LOXONIN [Suspect]
     Active Substance: LOXOPROFEN SODIUM
     Indication: EXCORIATION
     Dosage: 6 MG, TID
     Route: 048
     Dates: start: 20141022, end: 20141031

REACTIONS (3)
  - Gastrointestinal haemorrhage [Recovered/Resolved]
  - Duodenal ulcer [Recovered/Resolved]
  - Haemoglobin decreased [Unknown]

NARRATIVE: CASE EVENT DATE: 2014
